FAERS Safety Report 5734087-0 (Version None)
Quarter: 2008Q2

REPORT INFORMATION
  Report Type: 
  Country: None (occurrence: None)
  Receive Date: 20080509
  Receipt Date: 20080504
  Transmission Date: 20081010
  Serious: Yes (Other)
  Sender: FDA-Public Use
  Company Number: US-PFIZER INC-2008038631

PATIENT
  Sex: Male
  Weight: 61.363 kg

DRUGS (2)
  1. VIAGRA [Suspect]
     Indication: SEXUAL DYSFUNCTION
     Route: 048
     Dates: start: 20040101, end: 20070901
  2. ALL OTHER THERAPEUTIC PRODUCTS [Concomitant]
     Route: 048
     Dates: start: 20070701, end: 20070901

REACTIONS (4)
  - EAR DISORDER [None]
  - EAR PAIN [None]
  - HEARING IMPAIRED [None]
  - TINNITUS [None]
